FAERS Safety Report 7388894-1 (Version None)
Quarter: 2011Q2

REPORT INFORMATION
  Report Type: 
  Country: None (occurrence: None)
  Receive Date: 20110401
  Receipt Date: 20110316
  Transmission Date: 20111010
  Serious: Yes (Hospitalization, Other)
  Sender: FDA-Public Use
  Company Number: US-BAYER-201034069NA

PATIENT
  Sex: Female
  Weight: 102.4 kg

DRUGS (7)
  1. YASMIN [Suspect]
     Indication: PRODUCT USED FOR UNKNOWN INDICATION
  2. LITHIUM [Concomitant]
     Dosage: 300 MG, QD
  3. YAZ [Suspect]
     Indication: PRODUCT USED FOR UNKNOWN INDICATION
  4. CEFTIN [Concomitant]
     Indication: PNEUMONIA
     Dosage: 1000 MG, QD
  5. BIAXIN [Concomitant]
     Indication: PNEUMONIA
     Dosage: 1000 MG, QD
  6. METFORMIN HCL [Concomitant]
     Dosage: 250 MG, QD
  7. ALBUTEROL [Concomitant]

REACTIONS (6)
  - CHOLECYSTECTOMY [None]
  - CHOLELITHIASIS [None]
  - CHOLECYSTITIS CHRONIC [None]
  - PAIN [None]
  - CHOLECYSTITIS ACUTE [None]
  - GALLBLADDER CHOLESTEROLOSIS [None]
